FAERS Safety Report 5073556-6 (Version None)
Quarter: 2006Q3

REPORT INFORMATION
  Report Type: 
  Country: None (occurrence: None)
  Receive Date: 20060717
  Receipt Date: 20060106
  Transmission Date: 20061208
  Serious: No
  Sender: FDA-Public Use
  Company Number: 2006000061

PATIENT
  Age: 76 Year
  Sex: Female
  Weight: 68.9467 kg

DRUGS (1)
  1. TARCEVA [Suspect]
     Indication: NON-SMALL CELL LUNG CANCER
     Dosage: 150 MG (QD), ORAL
     Route: 048
     Dates: start: 20051106, end: 20051227

REACTIONS (6)
  - DERMATITIS ACNEIFORM [None]
  - DIARRHOEA [None]
  - DRY SKIN [None]
  - EYE IRRITATION [None]
  - HYPOTRICHOSIS [None]
  - NAIL BED INFLAMMATION [None]
